FAERS Safety Report 24929138 (Version 1)
Quarter: 2025Q1

REPORT INFORMATION
  Report Type: Spontaneous
  Country: US (occurrence: US)
  Receive Date: 20250205
  Receipt Date: 20250205
  Transmission Date: 20250408
  Serious: Yes (Hospitalization, Other)
  Sender: GLAXOSMITHKLINE
  Company Number: US-GSKCCFUS-Case-02209015_AE-121244

PATIENT

DRUGS (2)
  1. ADVAIR DISKUS [Suspect]
     Active Substance: FLUTICASONE PROPIONATE\SALMETEROL XINAFOATE
     Indication: Asthma
  2. FLUTICASONE PROPIONATE AND SALMETEROL [Suspect]
     Active Substance: FLUTICASONE PROPIONATE\SALMETEROL XINAFOATE
     Indication: Product used for unknown indication

REACTIONS (8)
  - Vomiting [Unknown]
  - Osteoporosis [Unknown]
  - Osteoarthritis [Unknown]
  - Pulmonary oedema [Unknown]
  - Loss of consciousness [Unknown]
  - Oxygen saturation decreased [Unknown]
  - Illness [Unknown]
  - Incorrect dose administered [Unknown]
